FAERS Safety Report 10084697 (Version 1)
Quarter: 2014Q2

REPORT INFORMATION
  Report Type: Spontaneous
  Country: US (occurrence: US)
  Receive Date: 20140417
  Receipt Date: 20140417
  Transmission Date: 20141212
  Serious: Yes (Hospitalization)
  Sender: FDA-Public Use
  Company Number: US-GLAXOSMITHKLINE-A1069287A

PATIENT
  Sex: Male

DRUGS (5)
  1. ADVAIR HFA [Suspect]
     Indication: RETCHING
     Dosage: 1PUFF PER DAY
     Route: 055
     Dates: start: 2005
  2. ALBUTEROL [Suspect]
     Indication: CHOKING
     Route: 065
  3. COMBIVENT [Suspect]
     Indication: CHOKING
     Route: 065
  4. LANTUS [Concomitant]
  5. NOVOLOG [Concomitant]

REACTIONS (3)
  - Choking [Unknown]
  - Pulmonary fibrosis [Unknown]
  - Cerebrovascular accident [Unknown]
